FAERS Safety Report 14872725 (Version 1)
Quarter: 2018Q2

REPORT INFORMATION
  Report Type: Spontaneous
  Country: US (occurrence: US)
  Receive Date: 20180510
  Receipt Date: 20180510
  Transmission Date: 20180711
  Serious: Yes (Other)
  Sender: FDA-Public Use
  Company Number: US-ROCHE-2116920

PATIENT
  Age: 55 Year
  Sex: Female
  Weight: 61.74 kg

DRUGS (5)
  1. LIPITOR [Suspect]
     Active Substance: ATORVASTATIN CALCIUM
     Indication: BLOOD CHOLESTEROL INCREASED
     Dosage: ONGOING: UNKNOWN
     Route: 065
     Dates: start: 20180122
  2. XELODA [Suspect]
     Active Substance: CAPECITABINE
     Indication: BREAST CANCER METASTATIC
     Route: 065
     Dates: start: 201612, end: 201803
  3. XELODA [Suspect]
     Active Substance: CAPECITABINE
     Indication: BREAST CANCER
     Route: 065
     Dates: start: 20161213, end: 20180414
  4. ERIBULIN [Suspect]
     Active Substance: ERIBULIN
     Indication: BREAST CANCER METASTATIC
     Route: 065
     Dates: start: 201609, end: 201701
  5. DENOSUMAB [Suspect]
     Active Substance: DENOSUMAB
     Indication: BREAST CANCER METASTATIC
     Dosage: ONGOING: YES
     Route: 065
     Dates: start: 201609

REACTIONS (7)
  - Essential thrombocythaemia [Unknown]
  - Myocardial infarction [Recovered/Resolved]
  - Herpes simplex [Unknown]
  - Osteonecrosis of jaw [Unknown]
  - Menopause [Unknown]
  - Hypertriglyceridaemia [Unknown]
  - Diverticulum intestinal [Unknown]

NARRATIVE: CASE EVENT DATE: 20180206
